FAERS Safety Report 19435989 (Version 1)
Quarter: 2021Q2

REPORT INFORMATION
  Report Type: Spontaneous
  Country: GB (occurrence: GB)
  Receive Date: 20210618
  Receipt Date: 20210618
  Transmission Date: 20210717
  Serious: Yes (Other)
  Sender: FDA-Public Use
  Company Number: GB-PERRIGO-21GB007677

PATIENT

DRUGS (5)
  1. IBUPROFEN. [Suspect]
     Active Substance: IBUPROFEN
     Indication: PRODUCT USED FOR UNKNOWN INDICATION
     Dosage: UNK
     Route: 065
  2. VACCINES [Suspect]
     Active Substance: UNSPECIFIED INGREDIENT
     Dosage: UNK
     Dates: start: 20210527
  3. CERELLE [Concomitant]
     Active Substance: DESOGESTREL
     Indication: ENDOMETRITIS
     Dosage: UNK
     Dates: start: 20141001
  4. CODEINE [Concomitant]
     Active Substance: CODEINE
     Indication: PAIN
  5. DULOXETINE. [Concomitant]
     Active Substance: DULOXETINE
     Indication: ANXIETY
     Dosage: UNK
     Dates: start: 20210401

REACTIONS (11)
  - Myalgia [Recovered/Resolved]
  - Pyrexia [Recovered/Resolved]
  - Vertigo [Not Recovered/Not Resolved]
  - Balance disorder [Not Recovered/Not Resolved]
  - Dizziness [Recovered/Resolved]
  - Chills [Recovering/Resolving]
  - Vestibular neuronitis [Not Recovered/Not Resolved]
  - Migraine [Not Recovered/Not Resolved]
  - Optic neuritis [Recovering/Resolving]
  - Dysgeusia [Recovered/Resolved]
  - Gastrointestinal pain [Recovered/Resolved]

NARRATIVE: CASE EVENT DATE: 20210527
